FAERS Safety Report 13745548 (Version 3)
Quarter: 2019Q1

REPORT INFORMATION
  Report Type: Spontaneous
  Country: DE (occurrence: DE)
  Receive Date: 20170712
  Receipt Date: 20190128
  Transmission Date: 20190417
  Serious: Yes (Other)
  Sender: FDA-Public Use
  Company Number: ALCN2017DE004312

PATIENT
  Sex: Female

DRUGS (2)
  1. AZOPT [Suspect]
     Active Substance: BRINZOLAMIDE
     Indication: PRODUCT USED FOR UNKNOWN INDICATION
     Dosage: UNK UNK, TID
     Route: 047
  2. GANFORT [Concomitant]
     Active Substance: BIMATOPROST\TIMOLOL
     Indication: PRODUCT USED FOR UNKNOWN INDICATION
     Dosage: 1 GTT, QD (MORNING)
     Route: 047

REACTIONS (7)
  - Macular oedema [Unknown]
  - Colour blindness [Unknown]
  - Product quality issue [Unknown]
  - Visual impairment [Unknown]
  - Cataract [Unknown]
  - Overdose [Unknown]
  - Intraocular pressure increased [Unknown]
